FAERS Safety Report 6186920-9 (Version None)
Quarter: 2009Q2

REPORT INFORMATION
  Report Type: 
  Country: None (occurrence: None)
  Receive Date: 20090512
  Receipt Date: 20090430
  Transmission Date: 20091009
  Serious: Yes (Hospitalization, Other)
  Sender: FDA-Public Use
  Company Number: US-WYE-H09029909

PATIENT
  Age: 51 Year
  Sex: Female

DRUGS (3)
  1. TEMSIROLIMUS [Suspect]
     Indication: LUNG CANCER METASTATIC
     Route: 042
     Dates: start: 20090203, end: 20090210
  2. TEMSIROLIMUS [Suspect]
     Route: 042
     Dates: start: 20090224, end: 20090224
  3. DOXIL [Suspect]
     Indication: LUNG CANCER METASTATIC
     Dosage: 25MG/M^2; 53.2MG; ONCE EVERY FOUR WEEKS
     Route: 042
     Dates: start: 20090203, end: 20090203

REACTIONS (13)
  - ABDOMINAL PAIN [None]
  - ALANINE AMINOTRANSFERASE INCREASED [None]
  - ASPARTATE AMINOTRANSFERASE INCREASED [None]
  - BLADDER SPASM [None]
  - BLOOD ALKALINE PHOSPHATASE INCREASED [None]
  - BLOOD BILIRUBIN INCREASED [None]
  - CHEST PAIN [None]
  - DYSPNOEA [None]
  - HEADACHE [None]
  - HYPOKALAEMIA [None]
  - PLATELET COUNT DECREASED [None]
  - URINARY INCONTINENCE [None]
  - URINARY TRACT INFECTION [None]
